FAERS Safety Report 16736807 (Version 1)
Quarter: 2019Q3

REPORT INFORMATION
  Report Type: Spontaneous
  Country: US (occurrence: US)
  Receive Date: 20190823
  Receipt Date: 20190823
  Transmission Date: 20191005
  Serious: Yes (Death, Other)
  Sender: FDA-Public Use
  Company Number: US-009507513-1908USA008411

PATIENT
  Age: 39 Year
  Sex: Male

DRUGS (9)
  1. ZERBAXA [Suspect]
     Active Substance: CEFTOLOZANE SULFATE\TAZOBACTAM SODIUM
     Indication: ABDOMINAL INFECTION
     Dosage: 1.5 GM EVERY 8 HOURS FOR 5 DAYS
  2. CUBICIN [Suspect]
     Active Substance: DAPTOMYCIN
     Indication: SEPSIS
  3. ZYVOX [Suspect]
     Active Substance: LINEZOLID
     Indication: ABDOMINAL INFECTION
     Dosage: UNK
  4. ZYVOX [Suspect]
     Active Substance: LINEZOLID
     Indication: SEPSIS
  5. CUBICIN [Suspect]
     Active Substance: DAPTOMYCIN
     Indication: ABDOMINAL INFECTION
     Dosage: UNK
     Route: 042
  6. ZERBAXA [Suspect]
     Active Substance: CEFTOLOZANE SULFATE\TAZOBACTAM SODIUM
     Indication: SEPSIS
  7. ZYVOX [Suspect]
     Active Substance: LINEZOLID
     Indication: BACTERAEMIA
  8. CUBICIN [Suspect]
     Active Substance: DAPTOMYCIN
     Indication: BACTERAEMIA
  9. ZERBAXA [Suspect]
     Active Substance: CEFTOLOZANE SULFATE\TAZOBACTAM SODIUM
     Indication: BACTERAEMIA

REACTIONS (2)
  - Withdrawal of life support [Fatal]
  - Acute respiratory distress syndrome [Unknown]
